FAERS Safety Report 18741301 (Version 4)
Quarter: 2021Q3

REPORT INFORMATION
  Report Type: Spontaneous
  Country: US (occurrence: US)
  Receive Date: 20210114
  Receipt Date: 20210811
  Transmission Date: 20211014
  Serious: No
  Sender: FDA-Public Use
  Company Number: US-PFIZER INC-2021020987

PATIENT
  Age: 65 Year

DRUGS (1)
  1. PREMARIN [Suspect]
     Active Substance: ESTROGENS, CONJUGATED
     Dosage: UNK

REACTIONS (8)
  - Asthma [Unknown]
  - Insomnia [Unknown]
  - Night sweats [Unknown]
  - Dyspnoea [Unknown]
  - Feeling abnormal [Unknown]
  - Illness [Unknown]
  - Fatigue [Unknown]
  - Poor quality sleep [Unknown]

NARRATIVE: CASE EVENT DATE: 2020
